FAERS Safety Report 6641014-0 (Version None)
Quarter: 2010Q1

REPORT INFORMATION
  Report Type: 
  Country: None (occurrence: None)
  Receive Date: 20100318
  Receipt Date: 20100308
  Transmission Date: 20100710
  Serious: Yes (Other)
  Sender: FDA-Public Use
  Company Number: B0639762A

PATIENT
  Age: 61 Year
  Sex: Female

DRUGS (1)
  1. AVANDIA [Suspect]
     Dosage: 4MG PER DAY
     Route: 065

REACTIONS (3)
  - DIABETIC EYE DISEASE [None]
  - DIABETIC RETINAL OEDEMA [None]
  - VISUAL ACUITY REDUCED [None]
